FAERS Safety Report 10358278 (Version 1)
Quarter: 2014Q3

REPORT INFORMATION
  Report Type: Spontaneous
  Country: GB (occurrence: GB)
  Receive Date: 20140801
  Receipt Date: 20140801
  Transmission Date: 20150326
  Serious: Yes (Hospitalization, Other)
  Sender: FDA-Public Use
  Company Number: GB-MYLAN-2014S1017623

PATIENT

DRUGS (3)
  1. BENDROFLUMETHIAZIDE [Suspect]
     Active Substance: BENDROFLUMETHIAZIDE
     Indication: HYPERTENSION
     Dosage: UNK
     Route: 065
  2. SODIUM CHLORIDE. [Suspect]
     Active Substance: SODIUM CHLORIDE
     Dosage: UNK
     Route: 042
  3. DESMOPRESSIN [Suspect]
     Active Substance: DESMOPRESSIN
     Indication: ENURESIS
     Dosage: UNK
     Route: 065

REACTIONS (7)
  - Hypokalaemia [None]
  - Pyramidal tract syndrome [None]
  - Dysphagia [None]
  - Hyponatraemia [None]
  - Delirium [None]
  - Osmotic demyelination syndrome [Recovering/Resolving]
  - Quadriparesis [Recovering/Resolving]
